APPROVED DRUG PRODUCT: PHENERGAN
Active Ingredient: PROMETHAZINE HYDROCHLORIDE
Strength: 12.5MG **Federal Register determination that product was not discontinued or withdrawn for safety or effectiveness reasons**
Dosage Form/Route: SUPPOSITORY;RECTAL
Application: N010926 | Product #002
Applicant: NORVIUM BIOSCIENCE LLC
Approved: Approved Prior to Jan 1, 1982 | RLD: Yes | RS: No | Type: DISCN